FAERS Safety Report 8957201 (Version 2)
Quarter: 2013Q1

REPORT INFORMATION
  Report Type: Spontaneous
  Country: FR (occurrence: FR)
  Receive Date: 20121211
  Receipt Date: 20130129
  Transmission Date: 20140127
  Serious: No
  Sender: FDA-Public Use
  Company Number: FR-JNJFOC-20121204239

PATIENT
  Age: 76 Year
  Sex: Male

DRUGS (3)
  1. XARELTO [Suspect]
     Indication: THROMBOSIS PROPHYLAXIS
     Route: 065
     Dates: start: 20121121, end: 20121124
  2. XARELTO [Suspect]
     Indication: HIP ARTHROPLASTY
     Route: 065
     Dates: start: 20121121, end: 20121124
  3. CAPTEA [Concomitant]
     Indication: HYPERTENSION
     Route: 065

REACTIONS (2)
  - Agitation [Recovered/Resolved]
  - Incoherent [Recovered/Resolved]
